FAERS Safety Report 7289399-9 (Version None)
Quarter: 2011Q1

REPORT INFORMATION
  Report Type: 
  Country: None (occurrence: None)
  Receive Date: 20110211
  Receipt Date: 20110209
  Transmission Date: 20110831
  Serious: Yes (Other)
  Sender: FDA-Public Use
  Company Number: US-AMGEN-USASP2011008024

PATIENT
  Sex: Female

DRUGS (2)
  1. NPLATE [Suspect]
     Indication: IDIOPATHIC THROMBOCYTOPENIC PURPURA
     Dosage: 232 A?G, UNK
     Dates: start: 20100225, end: 20101105
  2. CORTICOSTEROIDS [Concomitant]

REACTIONS (3)
  - THERAPEUTIC RESPONSE DECREASED [None]
  - MOUTH HAEMORRHAGE [None]
  - BLOOD BLISTER [None]
